FAERS Safety Report 23728055 (Version 2)
Quarter: 2024Q2

REPORT INFORMATION
  Report Type: Spontaneous
  Country: US (occurrence: US)
  Receive Date: 20240410
  Receipt Date: 20240610
  Transmission Date: 20240716
  Serious: No
  Sender: FDA-Public Use
  Company Number: US-BIOGEN-2023BI01224722

PATIENT
  Age: 50 Year
  Sex: Female

DRUGS (4)
  1. VUMERITY [Suspect]
     Active Substance: DIROXIMEL FUMARATE
     Indication: Multiple sclerosis
     Dosage: TAKE 1 CAPSULE?(231MG) BY MOUTH?TWICE DAILY FOR THE?FIRST 7 DAYS, THEN?TAKE 2 CAPSULES?(462MG) TW...
     Route: 050
     Dates: start: 20230830, end: 20230906
  2. LITHIUM CARBONATE [Concomitant]
     Active Substance: LITHIUM CARBONATE
     Route: 050
  3. SEROQUEL [Concomitant]
     Active Substance: QUETIAPINE FUMARATE
     Route: 050
  4. MECLIZINE HYDROCHLORIDE [Concomitant]
     Active Substance: MECLIZINE HYDROCHLORIDE
     Route: 050

REACTIONS (6)
  - Treatment failure [Unknown]
  - Skin burning sensation [Unknown]
  - Insomnia [Unknown]
  - Erythema [Unknown]
  - Hot flush [Unknown]
  - Hypersensitivity [Recovered/Resolved]

NARRATIVE: CASE EVENT DATE: 20230831
